FAERS Safety Report 8185576-3 (Version None)
Quarter: 2012Q1

REPORT INFORMATION
  Report Type: 
  Country: None (occurrence: None)
  Receive Date: 20120305
  Receipt Date: 20120301
  Transmission Date: 20120608
  Serious: No
  Sender: FDA-Public Use
  Company Number: US-PFIZER INC-2012056716

PATIENT
  Sex: Female

DRUGS (1)
  1. LIPITOR [Suspect]
     Dosage: UNK
     Dates: start: 20120201, end: 20120224

REACTIONS (5)
  - MALAISE [None]
  - MYALGIA [None]
  - NECK PAIN [None]
  - MIGRAINE [None]
  - BACK PAIN [None]
